FAERS Safety Report 12068737 (Version 1)
Quarter: 2016Q1

REPORT INFORMATION
  Report Type: Spontaneous
  Country: US (occurrence: US)
  Receive Date: 20160211
  Receipt Date: 20160211
  Transmission Date: 20160526
  Serious: No
  Sender: FDA-Public Use
  Company Number: US-VIFOR (INTERNATIONAL) INC.-VIT-2016-00190

PATIENT
  Age: 24 Year
  Sex: Female
  Weight: 107.5 kg

DRUGS (1)
  1. MIRCERA [Suspect]
     Active Substance: METHOXY POLYETHYLENE GLYCOL-EPOETIN BETA
     Indication: PRODUCT USED FOR UNKNOWN INDICATION
     Dates: start: 2015, end: 201511

REACTIONS (4)
  - Dyspnoea [Unknown]
  - Pruritus [Unknown]
  - Back pain [Unknown]
  - Back pain [Unknown]

NARRATIVE: CASE EVENT DATE: 20151105
